FAERS Safety Report 9749214 (Version 1)
Quarter: 2013Q4

REPORT INFORMATION
  Report Type: Spontaneous
  Country: US (occurrence: US)
  Receive Date: 20131212
  Receipt Date: 20131212
  Transmission Date: 20140711
  Serious: Yes (Other)
  Sender: FDA-Public Use
  Company Number: US-TEVA-392003USA

PATIENT
  Age: 24 Year
  Sex: Female
  Weight: 151.18 kg

DRUGS (2)
  1. PARAGARD 380A [Suspect]
     Indication: CONTRACEPTION
     Route: 015
     Dates: start: 200608, end: 20130312
  2. NORVASC [Concomitant]
     Indication: HYPERTENSION

REACTIONS (4)
  - Medical device complication [Recovered/Resolved]
  - Device dislocation [Recovered/Resolved]
  - Pelvic pain [Unknown]
  - Infection [Recovered/Resolved]
